FAERS Safety Report 7193859-9 (Version None)
Quarter: 2010Q4

REPORT INFORMATION
  Report Type: 
  Country: None (occurrence: None)
  Receive Date: 20101124
  Receipt Date: 20100923
  Transmission Date: 20110411
  Serious: No
  Sender: FDA-Public Use
  Company Number: 018022

PATIENT
  Age: 46 Year
  Sex: Male

DRUGS (1)
  1. LACOSAMIDE [Suspect]
     Indication: CONVULSION
     Dosage: (50 MG)
     Dates: start: 20100801

REACTIONS (1)
  - EPISTAXIS [None]
